FAERS Safety Report 4971701-1 (Version None)
Quarter: 2006Q2

REPORT INFORMATION
  Report Type: 
  Country: None (occurrence: None)
  Receive Date: 20060407
  Receipt Date: 20060324
  Transmission Date: 20061013
  Serious: Yes (Other)
  Sender: FDA-Public Use
  Company Number: 2006S1000068

PATIENT
  Age: 41 Year
  Sex: Female
  Weight: 58.9676 kg

DRUGS (5)
  1. SORIATANE [Suspect]
     Indication: PSORIASIS
     Dosage: 10 MG;QOD;PO
     Route: 048
     Dates: start: 19990709, end: 20050901
  2. SORIATANE [Suspect]
     Indication: PSORIASIS
     Dosage: 10 MG;QOD;PO
     Route: 048
     Dates: start: 20051101, end: 20060101
  3. CYCLOSPORINE [Concomitant]
  4. BIRTH CONTROL PATCH [Concomitant]
  5. BIRTH CONTROL PILL [Concomitant]

REACTIONS (3)
  - ALPHA 1 FOETOPROTEIN INCREASED [None]
  - DRUG EXPOSURE BEFORE PREGNANCY [None]
  - PREGNANCY ON ORAL CONTRACEPTIVE [None]
